FAERS Safety Report 25262579 (Version 1)
Quarter: 2025Q2

REPORT INFORMATION
  Report Type: Report from Study
  Country: CA (occurrence: CA)
  Receive Date: 20250502
  Receipt Date: 20250502
  Transmission Date: 20250717
  Serious: Yes (Other)
  Sender: TAKEDA
  Company Number: CA-TAKEDA-2025TUS041424

PATIENT
  Sex: Female

DRUGS (3)
  1. VEDOLIZUMAB [Suspect]
     Active Substance: VEDOLIZUMAB
     Indication: Colitis ulcerative
  2. Salofalk [Concomitant]
     Dosage: UNK UNK, 3/WEEK
     Dates: start: 19981230
  3. Salofalk [Concomitant]
     Dosage: 4000 MILLIGRAM, QD
     Dates: start: 20180223

REACTIONS (1)
  - Syndactyly [Unknown]
